FAERS Safety Report 11512578 (Version 1)
Quarter: 2015Q3

REPORT INFORMATION
  Report Type: Spontaneous
  Country: IT (occurrence: IT)
  Receive Date: 20150916
  Receipt Date: 20150916
  Transmission Date: 20151125
  Serious: Yes (Hospitalization)
  Sender: FDA-Public Use
  Company Number: IT-ACTAVIS-2015-19358

PATIENT
  Age: 74 Year
  Sex: Female
  Weight: 67 kg

DRUGS (2)
  1. XELODA [Suspect]
     Active Substance: CAPECITABINE
     Indication: COLON NEOPLASM
     Dosage: 2000 MG, CYCLICAL
     Route: 048
     Dates: start: 20141216, end: 20150723
  2. OXALIPLATINO ACTAVIS [Suspect]
     Active Substance: OXALIPLATIN
     Indication: COLON NEOPLASM
     Dosage: 200 MG, CYCLICAL
     Route: 041
     Dates: start: 20141216, end: 20150708

REACTIONS (5)
  - Vomiting [Recovered/Resolved]
  - Blood sodium decreased [Recovered/Resolved]
  - Blood potassium decreased [Recovered/Resolved]
  - Diarrhoea [Recovered/Resolved]
  - Acute kidney injury [Recovered/Resolved]

NARRATIVE: CASE EVENT DATE: 20150204
